FAERS Safety Report 16023592 (Version 2)
Quarter: 2019Q2

REPORT INFORMATION
  Report Type: Spontaneous
  Country: US (occurrence: US)
  Receive Date: 20190301
  Receipt Date: 20190531
  Transmission Date: 20190711
  Serious: Yes (Other)
  Sender: FDA-Public Use
  Company Number: US-ABBVIE-19S-163-2682315-00

PATIENT
  Sex: Male
  Weight: 99.88 kg

DRUGS (3)
  1. DENOSUMAB [Concomitant]
     Active Substance: DENOSUMAB
     Indication: BONE DISORDER
  2. LUPRON DEPOT [Suspect]
     Active Substance: LEUPROLIDE ACETATE
     Indication: PROSTATE CANCER
     Route: 030
     Dates: start: 201411, end: 2015
  3. LUPRON DEPOT [Suspect]
     Active Substance: LEUPROLIDE ACETATE
     Route: 030
     Dates: start: 2015

REACTIONS (8)
  - Muscle atrophy [Not Recovered/Not Resolved]
  - Myalgia [Not Recovered/Not Resolved]
  - Sciatica [Recovering/Resolving]
  - Prostatic specific antigen increased [Recovered/Resolved]
  - Neuropathy peripheral [Unknown]
  - Prostatic specific antigen increased [Not Recovered/Not Resolved]
  - Arthralgia [Unknown]
  - Night sweats [Recovering/Resolving]

NARRATIVE: CASE EVENT DATE: 201411
